FAERS Safety Report 14246526 (Version 1)
Quarter: 2017Q4

REPORT INFORMATION
  Report Type: Spontaneous
  Country: US (occurrence: US)
  Receive Date: 20171201
  Receipt Date: 20171201
  Transmission Date: 20180321
  Serious: Yes (Other)
  Sender: FDA-Public Use
  Company Number: None

PATIENT
  Age: 67 Year
  Sex: Male
  Weight: 72 kg

DRUGS (20)
  1. COENZYME Q10 [Concomitant]
     Active Substance: UBIDECARENONE
  2. GINGER. [Concomitant]
     Active Substance: GINGER
  3. LICORICE. [Concomitant]
     Active Substance: LICORICE
  4. QUERCETIN [Concomitant]
     Active Substance: QUERCETIN
  5. ACITOMINOPHEN [Concomitant]
  6. VITAMIN C [Concomitant]
     Active Substance: ASCORBIC ACID
  7. FLOMAX [Concomitant]
     Active Substance: TAMSULOSIN HYDROCHLORIDE
  8. DUPIXENT [Suspect]
     Active Substance: DUPILUMAB
     Indication: DERMATITIS ATOPIC
     Dosage: ?          OTHER FREQUENCY:ONCE EVERY 14 DAYS;?
     Route: 030
     Dates: start: 20171103
  9. LOMOTIL [Concomitant]
     Active Substance: ATROPINE SULFATE\DIPHENOXYLATE HYDROCHLORIDE
  10. BENADRYL [Concomitant]
     Active Substance: DIPHENHYDRAMINE HYDROCHLORIDE
  11. PRIMROSE OIL [Concomitant]
  12. ASACOL [Concomitant]
     Active Substance: MESALAMINE
  13. FISH OIL [Concomitant]
     Active Substance: FISH OIL
  14. PQQ [Concomitant]
  15. PRAVACHOL [Concomitant]
     Active Substance: PRAVASTATIN SODIUM
  16. ASPITION [Concomitant]
  17. TUMERIC [Concomitant]
     Active Substance: HERBALS\TURMERIC
  18. PROBIOTICS [Concomitant]
     Active Substance: PROBIOTICS NOS
  19. HYDROXINE [Concomitant]
     Active Substance: HYDROXYZINE HYDROCHLORIDE
  20. MULTI VITAMIN [Concomitant]
     Active Substance: VITAMINS

REACTIONS (9)
  - Urticaria [None]
  - Arthralgia [None]
  - Feeling abnormal [None]
  - Pain [None]
  - Erythema [None]
  - Hypersomnia [None]
  - Pruritus [None]
  - Fatigue [None]
  - Disturbance in attention [None]

NARRATIVE: CASE EVENT DATE: 20171103
